FAERS Safety Report 8419246-0 (Version None)
Quarter: 2012Q2

REPORT INFORMATION
  Report Type: 
  Country: None (occurrence: None)
  Receive Date: 20120607
  Receipt Date: 20120529
  Transmission Date: 20120825
  Serious: Yes (Death)
  Sender: FDA-Public Use
  Company Number: JP-GENZYME-THYM-1003260

PATIENT
  Sex: Male
  Weight: 68 kg

DRUGS (2)
  1. CYCLOSPORINE [Concomitant]
     Indication: APLASTIC ANAEMIA
     Dosage: UNK
     Route: 065
     Dates: start: 20100731, end: 20101101
  2. THYMOGLOBULIN [Suspect]
     Indication: APLASTIC ANAEMIA
     Dosage: 250 MG/DAY
     Route: 042
     Dates: start: 20101102, end: 20101106

REACTIONS (1)
  - APLASTIC ANAEMIA [None]
